FAERS Safety Report 6699011-5 (Version None)
Quarter: 2010Q2

REPORT INFORMATION
  Report Type: 
  Country: None (occurrence: None)
  Receive Date: 20100427
  Receipt Date: 20100416
  Transmission Date: 20101027
  Serious: Yes (Hospitalization)
  Sender: FDA-Public Use
  Company Number: JP-PFIZER INC-2010025197

PATIENT
  Age: 78 Year
  Sex: Male

DRUGS (9)
  1. SEIBULE [Suspect]
     Indication: DIABETES MELLITUS
     Dosage: 50 MG, 3X/DAY
     Route: 048
     Dates: start: 20100128, end: 20100213
  2. SEIBULE [Suspect]
     Dosage: 50 MG, 2X/DAY
     Route: 048
     Dates: start: 20100122, end: 20100127
  3. SEIBULE [Suspect]
     Dosage: UNK
     Route: 048
     Dates: end: 20100106
  4. AMARYL [Concomitant]
     Dosage: 2 MG, UNK
     Route: 048
  5. ENALAPRIL MALEATE [Concomitant]
     Dosage: 5 MG, UNK
     Route: 048
  6. CHLORMADINONE ACETATE [Concomitant]
     Dosage: 50 MG, UNK
     Route: 048
  7. GASLON [Concomitant]
     Dosage: 4 MG, UNK
     Route: 048
  8. UBRETID [Concomitant]
     Dosage: 10 MG, UNK
     Route: 048
  9. URIEF [Concomitant]
     Dosage: 8 MG, UNK
     Route: 048

REACTIONS (1)
  - LIVER DISORDER [None]
